FAERS Safety Report 4743268-4 (Version None)
Quarter: 2005Q3

REPORT INFORMATION
  Report Type: 
  Country: None (occurrence: None)
  Receive Date: 20050809
  Receipt Date: 20050708
  Transmission Date: 20060218
  Serious: Yes (Death)
  Sender: FDA-Public Use
  Company Number: 2005BI013102

PATIENT
  Age: 14 Year
  Sex: Female

DRUGS (5)
  1. AVONEX [Suspect]
     Indication: MULTIPLE SCLEROSIS
     Dosage: 30 UG; QW; IM
     Route: 030
     Dates: start: 20031101, end: 20050401
  2. NEURONTIN [Concomitant]
  3. TEGRETOL [Concomitant]
  4. METHADONE HCL [Concomitant]
  5. LORTAB [Concomitant]

REACTIONS (3)
  - DISEASE PROGRESSION [None]
  - MULTIPLE SCLEROSIS [None]
  - RESPIRATORY FAILURE [None]
